FAERS Safety Report 5321525-0 (Version None)
Quarter: 2007Q2

REPORT INFORMATION
  Report Type: 
  Country: None (occurrence: None)
  Receive Date: 20070510
  Receipt Date: 20070503
  Transmission Date: 20071010
  Serious: Yes (Hospitalization)
  Sender: FDA-Public Use
  Company Number: CH-ASTRAZENECA-2007PK00955

PATIENT
  Age: 89 Year
  Sex: Female

DRUGS (13)
  1. METOPROLOL SUCCINATE [Suspect]
     Indication: ATRIAL FIBRILLATION
     Route: 042
     Dates: start: 20070324, end: 20070324
  2. METOPROLOL SUCCINATE [Interacting]
     Indication: ATRIAL FLUTTER
     Route: 042
     Dates: start: 20070324, end: 20070324
  3. ISOPTIN [Interacting]
     Indication: ATRIAL FIBRILLATION
     Route: 048
     Dates: end: 20070324
  4. ISOPTIN [Interacting]
     Indication: ATRIAL FLUTTER
     Route: 048
     Dates: end: 20070324
  5. ISOPTIN [Interacting]
     Route: 048
     Dates: start: 20070324, end: 20070324
  6. ISOPTIN [Interacting]
     Route: 048
     Dates: start: 20070324, end: 20070324
  7. TIATRAL [Concomitant]
     Route: 048
  8. NEURONTIN [Concomitant]
     Route: 048
  9. RISPERDAL [Concomitant]
     Route: 048
  10. EFFEXOR [Concomitant]
     Route: 048
  11. ROHYPNOL [Concomitant]
     Route: 048
  12. PANTOZOL [Concomitant]
     Route: 048
  13. ELTROXIN [Concomitant]
     Route: 048

REACTIONS (2)
  - BRADYCARDIA [None]
  - DRUG INTERACTION [None]
